FAERS Safety Report 10960457 (Version 2)
Quarter: 2015Q2

REPORT INFORMATION
  Report Type: Other
  Country: US (occurrence: US)
  Receive Date: 20150327
  Receipt Date: 20150420
  Transmission Date: 20150821
  Serious: Yes (Death, Hospitalization)
  Sender: FDA-Public Use
  Company Number: US-UNITED THERAPEUTICS-UNT-2015-003219

PATIENT
  Age: 61 Year
  Sex: Male
  Weight: 129.25 kg

DRUGS (2)
  1. LETAIRIS [Concomitant]
     Active Substance: AMBRISENTAN
     Indication: PRODUCT USED FOR UNKNOWN INDICATION
  2. TYVASO [Suspect]
     Active Substance: TREPROSTINIL
     Indication: PULMONARY ARTERIAL HYPERTENSION
     Dosage: 18-72 MCG,QID
     Dates: start: 20090928

REACTIONS (4)
  - Septic shock [Fatal]
  - Respiratory failure [Fatal]
  - Cardiogenic shock [Fatal]
  - Endocarditis [Fatal]

NARRATIVE: CASE EVENT DATE: 201503
